FAERS Safety Report 22594273 (Version 1)
Quarter: 2023Q2

REPORT INFORMATION
  Report Type: Spontaneous
  Country: US (occurrence: None)
  Receive Date: 20230612
  Receipt Date: 20230612
  Transmission Date: 20230721
  Serious: No
  Sender: FDA-Public Use
  Company Number: None

PATIENT
  Sex: Female

DRUGS (10)
  1. CAPECITABINE [Suspect]
     Active Substance: CAPECITABINE
     Indication: Pancreatic carcinoma
     Dosage: 1T BID PO MON-FRI? ?
     Route: 048
  2. VITAMINS [Concomitant]
     Active Substance: VITAMINS
  3. ZINC VITES [Concomitant]
  4. FERROUS SULFATE [Concomitant]
     Active Substance: FERROUS SULFATE
  5. HYDRALIZINE [Concomitant]
  6. METOPROLOL [Concomitant]
     Active Substance: METOPROLOL
  7. BUMETANIDE [Concomitant]
     Active Substance: BUMETANIDE
  8. CALCIUM CITRATE [Concomitant]
     Active Substance: CALCIUM CITRATE
  9. SM MAGNESIUM [Concomitant]
  10. PROTONIX [Concomitant]
     Active Substance: PANTOPRAZOLE SODIUM

REACTIONS (1)
  - Metastases to liver [None]
